FAERS Safety Report 10023995 (Version 2)
Quarter: 2014Q2

REPORT INFORMATION
  Report Type: Spontaneous
  Country: DE (occurrence: JP)
  Receive Date: 20140320
  Receipt Date: 20140401
  Transmission Date: 20141212
  Serious: Yes (Hospitalization)
  Sender: FDA-Public Use
  Company Number: JP-FRI-1000064725

PATIENT
  Age: 85 Year
  Sex: Female
  Weight: 55 kg

DRUGS (15)
  1. MEMANTINE [Suspect]
     Indication: DEMENTIA ALZHEIMER^S TYPE
     Dosage: 5 MG
     Route: 048
     Dates: start: 201308, end: 20131120
  2. MEMANTINE [Suspect]
     Dosage: 10 MG
     Route: 048
     Dates: start: 20131121, end: 20140218
  3. MEMANTINE [Suspect]
     Indication: DEMENTIA ALZHEIMER^S TYPE
     Dosage: 20 MG
     Route: 048
     Dates: start: 20140219, end: 20140227
  4. GLICLAZIDE [Concomitant]
     Dosage: 40 MG
     Dates: start: 20130722
  5. LINAGLIPTIN [Concomitant]
     Dosage: 5 MG
     Dates: start: 20130722
  6. TOFRANIL [Concomitant]
  7. TOCOPHEROL [Concomitant]
     Dosage: 100 MG
  8. SPIRONOLACTONE [Concomitant]
     Dosage: 25 MG
  9. FAMOTIDINE [Concomitant]
  10. PURSENNID [Concomitant]
  11. LUNESTA [Concomitant]
  12. ARICEPT [Concomitant]
     Indication: DEMENTIA ALZHEIMER^S TYPE
     Dosage: 3 MG
     Dates: start: 201306, end: 20130801
  13. ARICEPT [Concomitant]
     Dosage: 5 MG
     Dates: start: 20130802, end: 20140115
  14. ARICEPT [Concomitant]
     Dosage: 10 MG
     Dates: start: 20140116
  15. LORAZEPAM [Concomitant]

REACTIONS (3)
  - Hyperglycaemia [Recovered/Resolved]
  - Tremor [Recovered/Resolved]
  - Dizziness [Recovered/Resolved]
